FAERS Safety Report 6510859-X (Version None)
Quarter: 2009Q4

REPORT INFORMATION
  Report Type: 
  Country: None (occurrence: None)
  Receive Date: 20091222
  Receipt Date: 20090127
  Transmission Date: 20100525
  Serious: No
  Sender: FDA-Public Use
  Company Number: US-ASTRAZENECA-2009UW02422

PATIENT
  Age: 65 Year
  Sex: Male
  Weight: 74.8 kg

DRUGS (2)
  1. CRESTOR [Suspect]
     Indication: BLOOD CHOLESTEROL INCREASED
     Route: 048
     Dates: start: 20090116, end: 20090126
  2. VITAMINS [Concomitant]

REACTIONS (1)
  - MUSCLE SPASMS [None]
